FAERS Safety Report 7576280-0 (Version None)
Quarter: 2011Q2

REPORT INFORMATION
  Report Type: 
  Country: None (occurrence: None)
  Receive Date: 20110628
  Receipt Date: 20110601
  Transmission Date: 20111010
  Serious: Yes (Other)
  Sender: FDA-Public Use
  Company Number: US-BAYER-2011-021663

PATIENT
  Age: 34 Year
  Sex: Female
  Weight: 121.54 kg

DRUGS (5)
  1. ASPIRIN [Concomitant]
  2. CLINDAMYCIN [Concomitant]
  3. YASMIN [Suspect]
     Indication: ACNE
  4. YASMIN [Suspect]
     Indication: CONTRACEPTION
     Dosage: UNK
     Dates: start: 20041001, end: 20061001
  5. CELEBREX [Concomitant]

REACTIONS (3)
  - DYSPNOEA [None]
  - PAIN [None]
  - PULMONARY EMBOLISM [None]
